FAERS Safety Report 7056186-6 (Version None)
Quarter: 2010Q4

REPORT INFORMATION
  Report Type: 
  Country: None (occurrence: None)
  Receive Date: 20101021
  Receipt Date: 20101018
  Transmission Date: 20110411
  Serious: Yes (Hospitalization, Other)
  Sender: FDA-Public Use
  Company Number: US-TEVA-250967USA

PATIENT
  Sex: Male

DRUGS (1)
  1. CLOZAPINE [Suspect]
     Indication: SCHIZOAFFECTIVE DISORDER
     Route: 048

REACTIONS (7)
  - ANAEMIA MACROCYTIC [None]
  - CONSTIPATION [None]
  - CONVULSION [None]
  - ENCEPHALOPATHY [None]
  - HYPOTENSION [None]
  - RENAL FAILURE [None]
  - RESPIRATORY FAILURE [None]
